FAERS Safety Report 7023597-4 (Version None)
Quarter: 2010Q3

REPORT INFORMATION
  Report Type: 
  Country: None (occurrence: None)
  Receive Date: 20100930
  Receipt Date: 20100930
  Transmission Date: 20110219
  Serious: Yes (Hospitalization)
  Sender: FDA-Public Use
  Company Number: None

PATIENT
  Age: 24 Year
  Sex: Female
  Weight: 76.2043 kg

DRUGS (4)
  1. TORADOL [Suspect]
     Indication: BACK PAIN
     Dosage: 30 MG ONE TIME IV BOLUS
     Route: 040
  2. VALIUM IV 10 MG/2 ML SYRINGE [Concomitant]
     Indication: BACK PAIN
     Dosage: 5 MG ONE TIME IV BOLUS
     Route: 040
  3. SUMATRIPTAN SUCCINATE [Concomitant]
  4. NAPROSYN [Concomitant]

REACTIONS (6)
  - AGITATION [None]
  - CONFUSIONAL STATE [None]
  - CONVULSION [None]
  - CRYING [None]
  - RESPIRATORY RATE INCREASED [None]
  - TREMOR [None]
